FAERS Safety Report 4634975-2 (Version None)
Quarter: 2005Q2

REPORT INFORMATION
  Report Type: 
  Country: None (occurrence: None)
  Receive Date: 20050411
  Receipt Date: 20050401
  Transmission Date: 20051028
  Serious: Yes (Death)
  Sender: FDA-Public Use
  Company Number: 2005038082

PATIENT
  Age: 75 Year
  Sex: Male

DRUGS (18)
  1. TIKOSYN [Suspect]
     Indication: CARDIAC DISORDER
     Dosage: 500 MCG (250 MCG TWICE  DAILY),ORAL
     Route: 048
     Dates: start: 20040820
  2. PROCHLORPERAZINE EDISYLATE (PROCHLOROPERAZINE EDISYLATE) [Concomitant]
  3. NITROGLYCERIN [Concomitant]
  4. LISINOPRIL [Concomitant]
  5. ALLOPURINOL [Concomitant]
  6. CARVEDILOL [Concomitant]
  7. CLOPIDOGREL BISULFATE [Concomitant]
  8. DIGOXIN [Concomitant]
  9. FUROSEMIDE [Concomitant]
  10. METOLAZONE [Concomitant]
  11. SPIRONOLACTONE [Concomitant]
  12. PANTOPRAZOLE (PANTOPRAZOLE) [Concomitant]
  13. SIMVASTATIN [Concomitant]
  14. EPOETIN ALFA (EPOETIN ALFA) [Concomitant]
  15. INSULIN [Concomitant]
  16. POLYSACCHARIDE-IRON COMPLEX (POLYSACCHARIDE-IRON COMPLEX) [Concomitant]
  17. PAROXETINE HCL [Concomitant]
  18. WARFARIN SODIUM [Concomitant]

REACTIONS (1)
  - DEATH [None]
